FAERS Safety Report 12469566 (Version 2)
Quarter: 2016Q3

REPORT INFORMATION
  Report Type: Spontaneous
  Country: US (occurrence: US)
  Receive Date: 20160615
  Receipt Date: 20160901
  Transmission Date: 20161109
  Serious: Yes (Death)
  Sender: FDA-Public Use
  Company Number: US-RELYPSA-RLY2016000933

PATIENT
  Age: 88 Year
  Sex: Male

DRUGS (31)
  1. COQ 10 [Concomitant]
     Active Substance: UBIDECARENONE
  2. FINASTERIDE. [Concomitant]
     Active Substance: FINASTERIDE
  3. IRON [Concomitant]
     Active Substance: IRON
  4. ULORIC [Concomitant]
     Active Substance: FEBUXOSTAT
  5. DOXAZOSIN MESYLATE. [Concomitant]
     Active Substance: DOXAZOSIN MESYLATE
  6. FLOMAX [Concomitant]
     Active Substance: TAMSULOSIN HYDROCHLORIDE
  7. PREVACID [Concomitant]
     Active Substance: LANSOPRAZOLE
  8. SODIUM BICARBONATE. [Concomitant]
     Active Substance: SODIUM BICARBONATE
  9. VELTASSA [Suspect]
     Active Substance: PATIROMER
     Indication: HYPERKALAEMIA
     Dosage: 8.4 G, QD
     Route: 048
  10. DIGOXIN. [Concomitant]
     Active Substance: DIGOXIN
  11. FOLIC ACID. [Concomitant]
     Active Substance: FOLIC ACID
  12. MELATONIN [Concomitant]
     Active Substance: MELATONIN
  13. MUCINEX DM [Concomitant]
     Active Substance: DEXTROMETHORPHAN HYDROBROMIDE\GUAIFENESIN
  14. XARELTO [Concomitant]
     Active Substance: RIVAROXABAN
  15. CALCIUM [Concomitant]
     Active Substance: CALCIUM
     Dosage: 500, UNK
  16. ALDACTONE [Concomitant]
     Active Substance: SPIRONOLACTONE
  17. INDERAL [Concomitant]
     Active Substance: PROPRANOLOL HYDROCHLORIDE
  18. NITROSTAT [Concomitant]
     Active Substance: NITROGLYCERIN
  19. PROCRIT [Concomitant]
     Active Substance: ERYTHROPOIETIN
  20. TYLENOL ARTHRITIS PAIN [Concomitant]
     Active Substance: ACETAMINOPHEN
  21. CYANOCOBALAMIN. [Concomitant]
     Active Substance: CYANOCOBALAMIN
  22. MIRALAX [Concomitant]
     Active Substance: POLYETHYLENE GLYCOL 3350
  23. SPIRIVA [Concomitant]
     Active Substance: TIOTROPIUM BROMIDE MONOHYDRATE
  24. VITAMIN D                          /00107901/ [Concomitant]
     Active Substance: ERGOCALCIFEROL
  25. ZINC [Concomitant]
     Active Substance: ZINC\ZINC CHLORIDE
  26. COREG [Concomitant]
     Active Substance: CARVEDILOL
  27. FUROSEMIDE. [Concomitant]
     Active Substance: FUROSEMIDE
  28. LUCENTIS [Concomitant]
     Active Substance: RANIBIZUMAB
  29. PAROXETINE HCL [Concomitant]
     Active Substance: PAROXETINE HYDROCHLORIDE
  30. VITAMIN C [Concomitant]
     Active Substance: ASCORBIC ACID
  31. ZYRTEC [Concomitant]
     Active Substance: CETIRIZINE HYDROCHLORIDE

REACTIONS (1)
  - Death [Fatal]

NARRATIVE: CASE EVENT DATE: 20160606
